FAERS Safety Report 18362234 (Version 4)
Quarter: 2020Q4

REPORT INFORMATION
  Report Type: Report from Study
  Country: AR (occurrence: AR)
  Receive Date: 20201008
  Receipt Date: 20201128
  Transmission Date: 20210114
  Serious: Yes (Other)
  Sender: FDA-Public Use
  Company Number: NVSC2020AR269846

PATIENT
  Age: 42 Year
  Sex: Male

DRUGS (4)
  1. AZITHROMYCIN ANHYDROUS. [Suspect]
     Active Substance: AZITHROMYCIN ANHYDROUS
     Indication: COVID-19 PROPHYLAXIS
     Dosage: UNK (500 UNITS NOT PROVIDED)
     Route: 065
     Dates: start: 20200911, end: 20200915
  2. COSENTYX [Suspect]
     Active Substance: SECUKINUMAB
     Dosage: UNK
     Route: 065
     Dates: end: 20200817
  3. COSENTYX [Suspect]
     Active Substance: SECUKINUMAB
     Indication: PSORIASIS
     Dosage: 300 MG, QMO
     Route: 058
     Dates: start: 20191223, end: 20200910
  4. AZITHROMYCIN ANHYDROUS. [Suspect]
     Active Substance: AZITHROMYCIN ANHYDROUS
     Dosage: UNK (1 0F 500 UNITS NOT PROVIDED)
     Route: 065
     Dates: start: 20200928, end: 20201003

REACTIONS (6)
  - COVID-19 [Unknown]
  - Ageusia [Recovered/Resolved with Sequelae]
  - Pharyngitis [Unknown]
  - Influenza like illness [Unknown]
  - SARS-CoV-2 test positive [Recovered/Resolved with Sequelae]
  - Anosmia [Recovered/Resolved with Sequelae]

NARRATIVE: CASE EVENT DATE: 20200925
